FAERS Safety Report 14933266 (Version 1)
Quarter: 2018Q2

REPORT INFORMATION
  Report Type: Spontaneous
  Country: US (occurrence: US)
  Receive Date: 20180504
  Receipt Date: 20180504
  Transmission Date: 20180711
  Serious: Yes (Death)
  Sender: FDA-Public Use
  Company Number: None

PATIENT
  Age: 69 Year
  Sex: Female

DRUGS (1)
  1. TETRABENAZINE. [Suspect]
     Active Substance: TETRABENAZINE
     Indication: HUNTINGTON^S DISEASE
     Dosage: ?          OTHER ROUTE:TABLET?
     Dates: start: 20160801, end: 20180420

REACTIONS (2)
  - Diabetes mellitus [None]
  - Renal failure [None]

NARRATIVE: CASE EVENT DATE: 20180420
